FAERS Safety Report 22942164 (Version 2)
Quarter: 2023Q4

REPORT INFORMATION
  Report Type: Other
  Country: US (occurrence: None)
  Receive Date: 20230914
  Receipt Date: 20231116
  Transmission Date: 20240110
  Serious: Yes (Hospitalization)
  Sender: FDA-Public Use
  Company Number: US-ROCHE-3419589

PATIENT
  Age: 37 Year
  Sex: Male
  Weight: 36.774 kg

DRUGS (2)
  1. EVRYSDI [Suspect]
     Active Substance: RISDIPLAM
     Indication: Spinal muscular atrophy
     Dosage: 0.75 MG/ML
     Route: 048
     Dates: start: 20201129
  2. EVRYSDI [Suspect]
     Active Substance: RISDIPLAM

REACTIONS (7)
  - Lower limb fracture [Recovering/Resolving]
  - Poor peripheral circulation [Unknown]
  - Hypoaesthesia [Unknown]
  - Skin discolouration [Unknown]
  - Blister [Unknown]
  - Skin exfoliation [Unknown]
  - Pain [Not Recovered/Not Resolved]

NARRATIVE: CASE EVENT DATE: 20230907
